FAERS Safety Report 8005770-1 (Version None)
Quarter: 2011Q4

REPORT INFORMATION
  Report Type: 
  Country: None (occurrence: None)
  Receive Date: 20111223
  Receipt Date: 20111212
  Transmission Date: 20120403
  Serious: Yes (Hospitalization, Other)
  Sender: FDA-Public Use
  Company Number: ES-CELGENEUS-144-50794-11121508

PATIENT
  Age: 63 Year
  Sex: Male

DRUGS (2)
  1. ANTIBIOTICS [Concomitant]
     Route: 065
     Dates: start: 20111110, end: 20111111
  2. VIDAZA [Suspect]
     Route: 065
     Dates: start: 20110413, end: 20111022

REACTIONS (3)
  - TOXICITY TO VARIOUS AGENTS [None]
  - LEUKOPENIA [None]
  - PNEUMONIA [None]
